FAERS Safety Report 8797817 (Version 4)
Quarter: 2012Q4

REPORT INFORMATION
  Report Type: 
  Country: US (occurrence: US)
  Receive Date: 20120920
  Receipt Date: 20121205
  Transmission Date: 20130627
  Serious: Yes (Hospitalization, Other)
  Sender: FDA-Public Use
  Company Number: US-PFIZER INC-2012230607

PATIENT
  Age: 42 Year
  Sex: Female
  Weight: 72.56 kg

DRUGS (12)
  1. DILANTIN-125 [Suspect]
     Indication: HALLUCINATIONS
     Dosage: 300 mg, (three phenytoin, 100 mg)
     Dates: start: 20120901, end: 20120914
  2. DILANTIN-125 [Suspect]
     Indication: SEIZURES
     Dosage: 300 mg, 1x/day
     Dates: end: 20121009
  3. DILANTIN-125 [Suspect]
     Indication: FEELING ABNORMAL
  4. DILANTIN-125 [Suspect]
     Indication: DYSPNEA
  5. DILANTIN-125 [Suspect]
     Indication: TREMOR
  6. ACETYLSALICYLIC ACID [Suspect]
     Indication: HEADACHE
     Dosage: 100 mg, (two aspirin, 50 mg), daily
     Dates: start: 201209
  7. LIBRIUM [Suspect]
     Indication: SHAKING
     Dosage: 50 mg, 3x/day
     Dates: start: 201209
  8. LIBRIUM [Suspect]
     Indication: SPEECH DISORDER
  9. LIBRIUM [Suspect]
     Indication: DISTURBANCE IN ATTENTION
  10. LIBRIUM [Suspect]
     Indication: THINKING ABNORMAL
  11. OXYGEN [Concomitant]
     Dosage: UNK
     Dates: start: 201209
  12. ASPIRIN [Concomitant]
     Dosage: UNK

REACTIONS (12)
  - Convulsion [Unknown]
  - Loss of consciousness [Unknown]
  - Fall [Unknown]
  - Head injury [Unknown]
  - Hallucination [Unknown]
  - Impaired work ability [Unknown]
  - Dysstasia [Unknown]
  - Anticonvulsant drug level abnormal [Unknown]
  - Feeling abnormal [Unknown]
  - Tremor [Unknown]
  - Dyspnoea [Unknown]
  - Drug ineffective [Unknown]
